FAERS Safety Report 9282343 (Version 2)
Quarter: 2013Q3

REPORT INFORMATION
  Report Type: Spontaneous
  Country: BR (occurrence: BR)
  Receive Date: 20130510
  Receipt Date: 20130822
  Transmission Date: 20140515
  Serious: Yes (Other)
  Sender: FDA-Public Use
  Company Number: BR-PFIZER INC-2013143852

PATIENT
  Age: 64 Year
  Sex: Male
  Weight: 93 kg

DRUGS (6)
  1. ATENOLOL [Suspect]
     Dosage: 100 MG, DAILY
     Route: 048
     Dates: start: 2000
  2. ATACAND [Suspect]
     Dosage: 16 MG, 1X/DAY (HS)
     Route: 048
     Dates: start: 2000, end: 201304
  3. ATACAND HCT [Suspect]
     Dosage: 16/12.5 QAM
     Route: 048
     Dates: start: 2000
  4. PANTOZOL [Concomitant]
     Indication: PROPHYLAXIS
     Dosage: UNK
     Route: 065
  5. SOMALGIN [Concomitant]
     Dosage: UNK
     Route: 065
     Dates: start: 1991
  6. VYTORIN [Concomitant]
     Dosage: UNK, DAILY
     Route: 065
     Dates: start: 2000

REACTIONS (2)
  - Angina pectoris [Not Recovered/Not Resolved]
  - Vascular graft occlusion [Not Recovered/Not Resolved]
